FAERS Safety Report 10228650 (Version 1)
Quarter: 2014Q2

REPORT INFORMATION
  Report Type: Spontaneous
  Country: DE (occurrence: DE)
  Receive Date: 20140610
  Receipt Date: 20140610
  Transmission Date: 20141212
  Serious: Yes (Hospitalization)
  Sender: FDA-Public Use
  Company Number: DE-JNJFOC-20140514740

PATIENT
  Age: 51 Year
  Sex: Female

DRUGS (3)
  1. SIMPONI [Suspect]
     Indication: COLITIS ULCERATIVE
     Dosage: DOSE OF 2X100 MG
     Route: 058
     Dates: start: 20140423, end: 20140423
  2. PREDNISOLON [Concomitant]
     Indication: COLITIS ULCERATIVE
     Route: 065
  3. SALOFALK [Concomitant]
     Indication: COLITIS ULCERATIVE
     Route: 065

REACTIONS (1)
  - Pyrexia [Recovered/Resolved]
